FAERS Safety Report 9752665 (Version 1)
Quarter: 2013Q4

REPORT INFORMATION
  Report Type: Spontaneous
  Country: US (occurrence: US)
  Receive Date: 20131213
  Receipt Date: 20131213
  Transmission Date: 20140711
  Serious: Yes (Hospitalization, Other)
  Sender: FDA-Public Use
  Company Number: US-AMGEN-USASP2013087677

PATIENT
  Age: 62 Year
  Sex: Female

DRUGS (1)
  1. ENBREL [Suspect]
     Indication: PSORIATIC ARTHROPATHY
     Dosage: 50 MG, QWK
     Route: 065
     Dates: start: 20030601

REACTIONS (5)
  - Ovarian cyst [Recovered/Resolved]
  - Borderline ovarian tumour [Not Recovered/Not Resolved]
  - Pain [Recovered/Resolved]
  - Rash erythematous [Not Recovered/Not Resolved]
  - Fungal infection [Not Recovered/Not Resolved]
